FAERS Safety Report 15759628 (Version 1)
Quarter: 2018Q4

REPORT INFORMATION
  Report Type: Spontaneous
  Country: RO (occurrence: RO)
  Receive Date: 20181226
  Receipt Date: 20181226
  Transmission Date: 20190205
  Serious: Yes (Other)
  Sender: FDA-Public Use
  Company Number: RO-CELLTRION INC.-2018RO024790

PATIENT

DRUGS (2)
  1. 5-AMINOSALICYLIC ACID [Concomitant]
     Active Substance: MESALAMINE
  2. INFLIXIMAB PFIZER (UNKNOWN) [Suspect]
     Active Substance: INFLIXIMAB
     Indication: CROHN^S DISEASE
     Dosage: UNK
     Route: 065

REACTIONS (7)
  - Interferon gamma release assay positive [Unknown]
  - Abdominal pain [Unknown]
  - Clostridium test positive [Unknown]
  - Perirectal abscess [Unknown]
  - Fistula [Unknown]
  - Drug specific antibody present [Unknown]
  - Diarrhoea [Unknown]

NARRATIVE: CASE EVENT DATE: 201603
